FAERS Safety Report 7528225-7 (Version None)
Quarter: 2011Q2

REPORT INFORMATION
  Report Type: 
  Country: None (occurrence: None)
  Receive Date: 20110607
  Receipt Date: 20100514
  Transmission Date: 20111010
  Serious: No
  Sender: FDA-Public Use
  Company Number: US-ASTRAZENECA-2010SE00705

PATIENT
  Age: 69 Year
  Sex: Female

DRUGS (4)
  1. ENALAPRIL MALEATE [Concomitant]
  2. CELEBREX [Concomitant]
  3. THYROID TAB [Concomitant]
  4. OMEPRAZOLE [Suspect]
     Indication: GASTROOESOPHAGEAL REFLUX DISEASE
     Route: 048

REACTIONS (6)
  - CONTUSION [None]
  - UPPER-AIRWAY COUGH SYNDROME [None]
  - DYSPEPSIA [None]
  - MULTIPLE ALLERGIES [None]
  - COUGH [None]
  - DRUG INEFFECTIVE [None]
